FAERS Safety Report 6656650-5 (Version None)
Quarter: 2010Q1

REPORT INFORMATION
  Report Type: 
  Country: None (occurrence: None)
  Receive Date: 20100329
  Receipt Date: 20100318
  Transmission Date: 20100710
  Serious: Yes (Hospitalization, Other)
  Sender: FDA-Public Use
  Company Number: US-BAXTER-2010BH007037

PATIENT
  Age: 69 Year
  Sex: Male

DRUGS (3)
  1. DIANEAL [Suspect]
     Indication: PERITONEAL DIALYSIS
     Route: 033
  2. DIANEAL [Suspect]
     Indication: PERITONEAL DIALYSIS
     Route: 033
  3. UNSPECIFIED PAIN MEDICATION [Suspect]
     Indication: PAIN IN EXTREMITY
     Route: 065

REACTIONS (3)
  - CONFUSIONAL STATE [None]
  - PAIN IN EXTREMITY [None]
  - PERIPHERAL EMBOLISM [None]
